FAERS Safety Report 5027099-6 (Version None)
Quarter: 2006Q2

REPORT INFORMATION
  Report Type: 
  Country: None (occurrence: None)
  Receive Date: 20060608
  Receipt Date: 20060527
  Transmission Date: 20061013
  Serious: Yes (Other)
  Sender: FDA-Public Use
  Company Number: 2006069101

PATIENT
  Sex: Female

DRUGS (1)
  1. VFEND [Suspect]
     Indication: ILL-DEFINED DISORDER
     Dosage: ORAL
     Route: 048

REACTIONS (3)
  - ASPERGILLOSIS [None]
  - CORNEAL TRANSPLANT [None]
  - VISUAL DISTURBANCE [None]
